FAERS Safety Report 6689851-0 (Version None)
Quarter: 2010Q2

REPORT INFORMATION
  Report Type: 
  Country: None (occurrence: None)
  Receive Date: 20100421
  Receipt Date: 20100414
  Transmission Date: 20101027
  Serious: Yes (Hospitalization)
  Sender: FDA-Public Use
  Company Number: FR-BRISTOL-MYERS SQUIBB COMPANY-15063860

PATIENT
  Age: 81 Year
  Sex: Male
  Weight: 70 kg

DRUGS (2)
  1. COUMADIN [Suspect]
     Route: 048
     Dates: start: 20010101, end: 20091118
  2. VAXIGRIP [Suspect]
     Indication: INFLUENZA IMMUNISATION
     Dosage: TAKEN ON AN ANNUAL BASIS.
     Route: 058
     Dates: start: 20050101

REACTIONS (7)
  - DECREASED APPETITE [None]
  - FATIGUE [None]
  - GENERAL PHYSICAL HEALTH DETERIORATION [None]
  - HAEMATOMA [None]
  - INFLAMMATION [None]
  - INTERNATIONAL NORMALISED RATIO INCREASED [None]
  - PAIN [None]
